FAERS Safety Report 10917267 (Version 2)
Quarter: 2015Q2

REPORT INFORMATION
  Report Type: Spontaneous
  Country: PE (occurrence: PE)
  Receive Date: 20150316
  Receipt Date: 20150519
  Transmission Date: 20150821
  Serious: Yes (Death, Other)
  Sender: FDA-Public Use
  Company Number: PE-JNJFOC-20150306369

PATIENT
  Age: 60 Year
  Sex: Female

DRUGS (4)
  1. XARELTO [Suspect]
     Active Substance: RIVAROXABAN
     Indication: EMBOLISM VENOUS
     Route: 048
  2. XARELTO [Suspect]
     Active Substance: RIVAROXABAN
     Indication: DEEP VEIN THROMBOSIS
     Route: 048
  3. XARELTO [Suspect]
     Active Substance: RIVAROXABAN
     Indication: EMBOLISM VENOUS
     Route: 048
  4. XARELTO [Suspect]
     Active Substance: RIVAROXABAN
     Indication: DEEP VEIN THROMBOSIS
     Route: 048

REACTIONS (3)
  - Pulmonary mass [Fatal]
  - Haematuria [Not Recovered/Not Resolved]
  - Metastases to lung [Fatal]

NARRATIVE: CASE EVENT DATE: 201310
